FAERS Safety Report 5241366-2 (Version None)
Quarter: 2007Q1

REPORT INFORMATION
  Report Type: 
  Country: None (occurrence: None)
  Receive Date: 20070220
  Receipt Date: 20070209
  Transmission Date: 20070707
  Serious: Yes (Death, Other)
  Sender: FDA-Public Use
  Company Number: FR-BRISTOL-MYERS SQUIBB COMPANY-13271374

PATIENT
  Age: 67 Year
  Sex: Female
  Weight: 49 kg

DRUGS (1)
  1. TAXOL [Suspect]
     Indication: LUNG ADENOCARCINOMA
     Route: 042

REACTIONS (3)
  - CATARACT [None]
  - MACULAR OEDEMA [None]
  - MALIGNANT NEOPLASM PROGRESSION [None]
